FAERS Safety Report 16279354 (Version 10)
Quarter: 2025Q1

REPORT INFORMATION
  Report Type: Report from Study
  Country: CA (occurrence: CA)
  Receive Date: 20190507
  Receipt Date: 20250317
  Transmission Date: 20250408
  Serious: Yes (Hospitalization, Other)
  Sender: TAKEDA
  Company Number: CA-TAKEDA-2019TUS027794

PATIENT
  Age: 81 Year
  Sex: Male

DRUGS (36)
  1. VEDOLIZUMAB [Suspect]
     Active Substance: VEDOLIZUMAB
     Indication: Colitis ulcerative
  2. VEDOLIZUMAB [Suspect]
     Active Substance: VEDOLIZUMAB
     Dosage: 300 MILLIGRAM, Q4WEEKS
     Dates: start: 20200110
  3. VEDOLIZUMAB [Suspect]
     Active Substance: VEDOLIZUMAB
     Dosage: 300 MILLIGRAM, Q4WEEKS
  4. VEDOLIZUMAB [Suspect]
     Active Substance: VEDOLIZUMAB
     Dosage: 300 MILLIGRAM, Q4WEEKS
  5. VEDOLIZUMAB [Suspect]
     Active Substance: VEDOLIZUMAB
     Dosage: 300 MILLIGRAM, Q4WEEKS
  6. VEDOLIZUMAB [Suspect]
     Active Substance: VEDOLIZUMAB
     Dosage: 300 MILLIGRAM, Q4WEEKS
  7. VEDOLIZUMAB [Suspect]
     Active Substance: VEDOLIZUMAB
     Dosage: 300 MILLIGRAM, Q4WEEKS
  8. VEDOLIZUMAB [Suspect]
     Active Substance: VEDOLIZUMAB
     Dosage: 300 MILLIGRAM, Q4WEEKS
  9. VEDOLIZUMAB [Suspect]
     Active Substance: VEDOLIZUMAB
     Dosage: 300 MILLIGRAM, Q4WEEKS
  10. VEDOLIZUMAB [Suspect]
     Active Substance: VEDOLIZUMAB
     Dosage: 300 MILLIGRAM, Q4WEEKS
  11. HYDRALAZINE [Concomitant]
     Active Substance: HYDRALAZINE HYDROCHLORIDE
  12. TERAZOSIN [Concomitant]
     Active Substance: TERAZOSIN HYDROCHLORIDE
  13. TRANDATE [Concomitant]
     Active Substance: LABETALOL HYDROCHLORIDE
  14. APIXABAN [Concomitant]
     Active Substance: APIXABAN
  15. CRESTOR [Concomitant]
     Active Substance: ROSUVASTATIN CALCIUM
  16. NIACIN [Concomitant]
     Active Substance: NIACIN
  17. ALLOPURINOL [Concomitant]
     Active Substance: ALLOPURINOL
  18. GABAPENTIN [Concomitant]
     Active Substance: GABAPENTIN
  19. PENTASA [Concomitant]
     Active Substance: MESALAMINE
  20. COSOPT [Concomitant]
     Active Substance: DORZOLAMIDE HYDROCHLORIDE\TIMOLOL MALEATE
  21. ACETAMINOPHEN\TRAMADOL [Concomitant]
     Active Substance: ACETAMINOPHEN\TRAMADOL
  22. IRON [Concomitant]
     Active Substance: IRON
  23. CARBIDOPA\LEVODOPA [Concomitant]
     Active Substance: CARBIDOPA\LEVODOPA
  24. FUROSEMIDE [Concomitant]
     Active Substance: FUROSEMIDE
  25. VITAMIN C [Concomitant]
     Active Substance: ASCORBIC ACID
  26. VITAMIN D [Concomitant]
     Active Substance: VITAMIN D NOS
  27. VITAMIN B12 [Concomitant]
     Active Substance: CYANOCOBALAMIN
  28. LEVOTHYROXINE [Concomitant]
     Active Substance: LEVOTHYROXINE
  29. PANTOPRAZOLE [Concomitant]
     Active Substance: PANTOPRAZOLE
  30. PREGABALIN [Concomitant]
     Active Substance: PREGABALIN
  31. ISOSORBIDE [Concomitant]
     Active Substance: ISOSORBIDE
  32. FERROUS SULFATE [Concomitant]
     Active Substance: FERROUS SULFATE
  33. ROSUVASTATIN [Concomitant]
     Active Substance: ROSUVASTATIN
  34. LUMIGAN [Concomitant]
     Active Substance: BIMATOPROST
  35. SPIRONOLACTONE [Concomitant]
     Active Substance: SPIRONOLACTONE
  36. AMIODARONE [Concomitant]
     Active Substance: AMIODARONE

REACTIONS (15)
  - Cardiac failure chronic [Unknown]
  - Atrial fibrillation [Unknown]
  - Myocardial infarction [Unknown]
  - Haemoglobin abnormal [Unknown]
  - Angina pectoris [Unknown]
  - Dizziness [Not Recovered/Not Resolved]
  - Pneumonia [Unknown]
  - Headache [Unknown]
  - Blood pressure decreased [Not Recovered/Not Resolved]
  - Cellulitis [Not Recovered/Not Resolved]
  - Dizziness postural [Not Recovered/Not Resolved]
  - Hypervolaemia [Not Recovered/Not Resolved]
  - Asthenia [Not Recovered/Not Resolved]
  - Infection [Unknown]
  - Off label use [Unknown]

NARRATIVE: CASE EVENT DATE: 20190412
